FAERS Safety Report 13702094 (Version 1)
Quarter: 2017Q2

REPORT INFORMATION
  Report Type: Spontaneous
  Country: US (occurrence: US)
  Receive Date: 20170629
  Receipt Date: 20170629
  Transmission Date: 20170830
  Serious: No
  Sender: FDA-Public Use
  Company Number: US-JNJFOC-20161214464

PATIENT
  Sex: Male

DRUGS (1)
  1. KETOCONAZOLE. [Suspect]
     Active Substance: KETOCONAZOLE
     Indication: TINEA INFECTION
     Route: 061
     Dates: start: 201612

REACTIONS (2)
  - Drug dose omission [Not Recovered/Not Resolved]
  - Physical product label issue [Not Recovered/Not Resolved]

NARRATIVE: CASE EVENT DATE: 201612
